FAERS Safety Report 20049596 (Version 1)
Quarter: 2021Q4

REPORT INFORMATION
  Report Type: Spontaneous
  Country: US (occurrence: US)
  Receive Date: 20211109
  Receipt Date: 20211109
  Transmission Date: 20220303
  Serious: Yes (Other)
  Sender: FDA-Public Use
  Company Number: US-MYLANLABS-2021M1080727

PATIENT
  Age: 72 Year
  Sex: Male

DRUGS (4)
  1. HALOPERIDOL [Suspect]
     Active Substance: HALOPERIDOL
     Indication: Ballismus
     Dosage: UNK
     Route: 042
  2. HALOPERIDOL [Suspect]
     Active Substance: HALOPERIDOL
     Indication: Hyperglycaemia
  3. DEXTROSE [Concomitant]
     Active Substance: DEXTROSE
     Indication: Ballismus
     Dosage: UNK
     Route: 065
  4. DEXTROSE [Concomitant]
     Active Substance: DEXTROSE
     Indication: Hyperglycaemia

REACTIONS (2)
  - Drug ineffective for unapproved indication [Unknown]
  - Off label use [Unknown]
